FAERS Safety Report 5081809-0 (Version None)
Quarter: 2006Q3

REPORT INFORMATION
  Report Type: 
  Country: None (occurrence: None)
  Receive Date: 20060816
  Receipt Date: 20060810
  Transmission Date: 20061208
  Serious: Yes (Hospitalization)
  Sender: FDA-Public Use
  Company Number: ES-GLAXOSMITHKLINE-B0434055A

PATIENT
  Age: 39 Year
  Sex: Male

DRUGS (6)
  1. EPIVIR [Suspect]
     Indication: HIV INFECTION
     Dosage: 150MG PER DAY
     Route: 048
     Dates: start: 20050601, end: 20060507
  2. CLAMOXYL [Suspect]
     Indication: CELLULITIS
     Dosage: 750MG THREE TIMES PER DAY
     Route: 048
     Dates: start: 20060401, end: 20060415
  3. VIRAMUNE [Suspect]
     Indication: HIV INFECTION
     Dosage: 200MG TWICE PER DAY
     Route: 048
     Dates: start: 20050601, end: 20060507
  4. VIREAD [Suspect]
     Indication: HIV INFECTION
     Dosage: 245MG PER DAY
     Route: 048
     Dates: start: 20050601, end: 20060507
  5. CLINDAMYCIN HCL [Suspect]
     Indication: HIV INFECTION
     Dosage: 150MG THREE TIMES PER WEEK
     Route: 048
     Dates: start: 20050601, end: 20060507
  6. IBUPROFEN [Suspect]
     Indication: PAIN
     Dosage: 1.8G THREE TIMES PER DAY
     Route: 048
     Dates: start: 20060401, end: 20060408

REACTIONS (2)
  - HEPATITIS C POSITIVE [None]
  - HEPATITIS CHOLESTATIC [None]
